FAERS Safety Report 24107495 (Version 1)
Quarter: 2024Q3

REPORT INFORMATION
  Report Type: Spontaneous
  Country: CN (occurrence: CN)
  Receive Date: 20240718
  Receipt Date: 20240718
  Transmission Date: 20241016
  Serious: Yes (Hospitalization)
  Sender: ROCHE
  Company Number: CN-ROCHE-10000028806

PATIENT
  Age: 63 Year
  Sex: Female
  Weight: 50 kg

DRUGS (6)
  1. TRASTUZUMAB [Suspect]
     Active Substance: TRASTUZUMAB
     Indication: Breast cancer
     Dosage: APPROVAL NUMBER S20181016
     Route: 042
     Dates: start: 20240627
  2. CARBOPLATIN [Suspect]
     Active Substance: CARBOPLATIN
     Indication: Breast cancer
     Dosage: NMPA APPROVAL NO. H10920028
     Route: 042
     Dates: start: 20240627
  3. PACLITAXEL [Suspect]
     Active Substance: PACLITAXEL
     Indication: Breast cancer
     Dosage: NMPA APPROVAL NO. H20193309
     Route: 042
     Dates: start: 20240627
  4. SODIUM CHLORIDE [Concomitant]
     Active Substance: SODIUM CHLORIDE
     Dosage: NMPA APPROVAL NO. H13023201
     Route: 042
     Dates: start: 20240627
  5. SODIUM CHLORIDE [Concomitant]
     Active Substance: SODIUM CHLORIDE
     Dosage: NMPA APPROVAL NO. H13023202
     Route: 042
     Dates: start: 20240627
  6. DEXTROSE [Concomitant]
     Active Substance: DEXTROSE\DEXTROSE MONOHYDRATE
     Dosage: NMPA APPROVAL NO. H13022476
     Route: 042
     Dates: start: 20240627

REACTIONS (1)
  - Myelosuppression [Recovering/Resolving]

NARRATIVE: CASE EVENT DATE: 20240702
